FAERS Safety Report 7630362-3 (Version None)
Quarter: 2011Q3

REPORT INFORMATION
  Report Type: 
  Country: None (occurrence: None)
  Receive Date: 20110722
  Receipt Date: 20110701
  Transmission Date: 20111222
  Serious: Yes (Hospitalization)
  Sender: FDA-Public Use
  Company Number: US-GLAXOSMITHKLINE-A0809579A

PATIENT
  Age: 62 Year
  Sex: Male
  Weight: 83.6 kg

DRUGS (8)
  1. ASPIRIN [Concomitant]
  2. ZOCOR [Concomitant]
  3. PLAVIX [Concomitant]
  4. AVANDIA [Suspect]
     Indication: DIABETES MELLITUS
     Dosage: 4MG PER DAY
     Route: 065
     Dates: start: 20040702
  5. BENICAR [Concomitant]
  6. LOVAZA [Concomitant]
  7. ZETIA [Concomitant]
  8. LOZOL [Concomitant]

REACTIONS (2)
  - CAROTID ARTERY STENOSIS [None]
  - CEREBROVASCULAR ACCIDENT [None]
